FAERS Safety Report 12429115 (Version 1)
Quarter: 2016Q2

REPORT INFORMATION
  Report Type: Spontaneous
  Country: US (occurrence: US)
  Receive Date: 20160602
  Receipt Date: 20160602
  Transmission Date: 20160815
  Serious: No
  Sender: FDA-Public Use
  Company Number: US-009507513-1605USA005412

PATIENT
  Age: 18 Year
  Sex: Female

DRUGS (1)
  1. NEXPLANON [Suspect]
     Active Substance: ETONOGESTREL
     Dosage: UNK
     Route: 065
     Dates: start: 20140826

REACTIONS (7)
  - Dizziness [Unknown]
  - Menorrhagia [Unknown]
  - Menstruation irregular [Unknown]
  - Product use issue [Unknown]
  - Amenorrhoea [Unknown]
  - Adverse event [Unknown]
  - Urinary tract infection [Unknown]

NARRATIVE: CASE EVENT DATE: 2014
